FAERS Safety Report 14094471 (Version 1)
Quarter: 2017Q4

REPORT INFORMATION
  Report Type: Spontaneous
  Country: GB (occurrence: GB)
  Receive Date: 20171016
  Receipt Date: 20171016
  Transmission Date: 20180321
  Serious: Yes (Other)
  Sender: FDA-Public Use
  Company Number: GB-PFIZER INC-2017438366

PATIENT
  Age: 17 Year
  Sex: Female
  Weight: 19 kg

DRUGS (5)
  1. COCODAMOL [Concomitant]
     Active Substance: ACETAMINOPHEN\CODEINE PHOSPHATE
     Dosage: 30 MG/500 MG TABLET; 1 OR 2 TABLETS TAKEN UP TO 4 TIMES A DAY WHEN REQUIRED (AS NEEDED)
     Dates: start: 20170913
  2. STEMETIL /00013301/ [Concomitant]
     Active Substance: PROCHLORPERAZINE
     Dosage: 1 DF, 3X/DAY (AS NEEDED)
     Dates: start: 20170913
  3. NAPROXEN. [Concomitant]
     Active Substance: NAPROXEN
     Dosage: 250 MG, 2X/DAY
     Dates: start: 20170913
  4. ZOLMITRIPTAN. [Concomitant]
     Active Substance: ZOLMITRIPTAN
     Indication: MIGRAINE
     Dosage: 1 TAB AT START OF MIGRAINE AND REPEATED AFTER TWO HOURS IF MIGRAINE WOULD RECUR (AS NEEDED)
     Route: 048
     Dates: start: 20170227
  5. SERTRALINE HCL [Suspect]
     Active Substance: SERTRALINE HYDROCHLORIDE
     Indication: PARONYCHIA
     Dosage: 50 MG, UNK
     Route: 048

REACTIONS (4)
  - Quadriplegia [Unknown]
  - Syncope [Recovered/Resolved]
  - Product use in unapproved indication [Unknown]
  - Monoplegia [Unknown]

NARRATIVE: CASE EVENT DATE: 20170203
